FAERS Safety Report 6875332-8 (Version None)
Quarter: 2010Q3

REPORT INFORMATION
  Report Type: 
  Country: None (occurrence: None)
  Receive Date: 20100727
  Receipt Date: 20070531
  Transmission Date: 20110219
  Serious: Yes (Hospitalization, Other)
  Sender: FDA-Public Use
  Company Number: US-PFIZER INC-2006124665

PATIENT
  Sex: Male
  Weight: 90.7 kg

DRUGS (2)
  1. CELEBREX [Suspect]
     Indication: PAIN
  2. VIOXX [Suspect]
     Indication: PAIN MANAGEMENT
     Dates: start: 20040101

REACTIONS (1)
  - ISCHAEMIC STROKE [None]
